FAERS Safety Report 12906815 (Version 1)
Quarter: 2016Q4

REPORT INFORMATION
  Report Type: Report from Study
  Country: US (occurrence: US)
  Receive Date: 20161103
  Receipt Date: 20161103
  Transmission Date: 20170207
  Serious: Yes (Disabling, Other)
  Sender: FDA-Public Use
  Company Number: US-EMD SERONO-7099033

PATIENT
  Age: 42 Year
  Sex: Male
  Weight: 122 kg

DRUGS (2)
  1. REBIF [Suspect]
     Active Substance: INTERFERON BETA-1A
     Indication: RELAPSING-REMITTING MULTIPLE SCLEROSIS
     Route: 058
     Dates: start: 20100408
  2. ALEVE [Concomitant]
     Active Substance: NAPROXEN SODIUM
     Indication: PREMEDICATION

REACTIONS (12)
  - Gait disturbance [Unknown]
  - Joint injury [Unknown]
  - Glycosylated haemoglobin increased [Recovering/Resolving]
  - Fall [Unknown]
  - Stress [Unknown]
  - Corneal disorder [Recovering/Resolving]
  - Feeling hot [Unknown]
  - Visual acuity reduced [Not Recovered/Not Resolved]
  - Blood glucose abnormal [Unknown]
  - Injection site discolouration [Unknown]
  - Weight decreased [Unknown]
  - Blindness [Not Recovered/Not Resolved]

NARRATIVE: CASE EVENT DATE: 201110
